FAERS Safety Report 21589756 (Version 4)
Quarter: 2022Q4

REPORT INFORMATION
  Report Type: Spontaneous
  Country: US (occurrence: US)
  Receive Date: 20221114
  Receipt Date: 20221220
  Transmission Date: 20230113
  Serious: Yes (Other)
  Sender: FDA-Public Use
  Company Number: US-ASTELLAS-2022US040196

PATIENT
  Age: 60 Year
  Sex: Male

DRUGS (5)
  1. LEXISCAN [Suspect]
     Active Substance: REGADENOSON
     Indication: Cardiac stress test
     Dosage: 0.4 MG, OTHER (ONCE) (0.4 MG/5ML)
     Route: 042
     Dates: start: 20220804, end: 20220804
  2. LEXISCAN [Suspect]
     Active Substance: REGADENOSON
     Indication: Cardiac stress test
     Dosage: 0.4 MG, OTHER (ONCE) (0.4 MG/5ML)
     Route: 042
     Dates: start: 20220804, end: 20220804
  3. LEXISCAN [Suspect]
     Active Substance: REGADENOSON
     Indication: Cardiac stress test
     Dosage: 0.4 MG, OTHER (ONCE) (0.4 MG/5ML)
     Route: 042
     Dates: start: 20220804, end: 20220804
  4. LEXISCAN [Suspect]
     Active Substance: REGADENOSON
     Indication: Cardiac stress test
     Dosage: 0.4 MG, OTHER (ONCE) (0.4 MG/5ML)
     Route: 042
     Dates: start: 20220804, end: 20220804
  5. LISINOPRIL [Concomitant]
     Active Substance: LISINOPRIL
     Indication: Hypertension
     Route: 065

REACTIONS (4)
  - Tunnel vision [Recovered/Resolved]
  - Bradycardia [Recovered/Resolved]
  - Blood pressure decreased [Recovered/Resolved]
  - Suspected product quality issue [Unknown]

NARRATIVE: CASE EVENT DATE: 20220804
